FAERS Safety Report 12649689 (Version 1)
Quarter: 2016Q3

REPORT INFORMATION
  Report Type: Spontaneous
  Country: US (occurrence: US)
  Receive Date: 20160812
  Receipt Date: 20160812
  Transmission Date: 20161109
  Serious: No
  Sender: FDA-Public Use
  Company Number: US-IMPAX LABORATORIES, INC-2015COR00164

PATIENT
  Sex: Male
  Weight: 86 kg

DRUGS (8)
  1. OMEGA 3, 6, 9 [Concomitant]
  2. VITAMIN E [Concomitant]
     Active Substance: .ALPHA.-TOCOPHEROL
  3. UNSPECIFIED TESTOSTERONE REPLACEMENT [Concomitant]
  4. BENICAR [Concomitant]
     Active Substance: OLMESARTAN MEDOXOMIL
     Dosage: 40 MG, 1X/DAY
     Dates: start: 2005
  5. MULTIVITAMIN [Concomitant]
     Active Substance: VITAMINS
  6. UNI-LIVER [Concomitant]
  7. CHROMIUM PERCOLATE [Concomitant]
  8. MIXED AMPHETAMINE SALTS [Suspect]
     Active Substance: AMPHETAMINE ASPARTATE\AMPHETAMINE SULFATE\DEXTROAMPHETAMINE SACCHARATE\DEXTROAMPHETAMINE SULFATE
     Indication: ATTENTION DEFICIT/HYPERACTIVITY DISORDER
     Dosage: 10 MG, 2X/DAY
     Route: 048
     Dates: start: 2015, end: 20150725

REACTIONS (3)
  - Palpitations [Recovering/Resolving]
  - Drug screen negative [Not Recovered/Not Resolved]
  - Drug interaction [Unknown]

NARRATIVE: CASE EVENT DATE: 2015
